FAERS Safety Report 9688506 (Version 1)
Quarter: 2013Q4

REPORT INFORMATION
  Report Type: Spontaneous
  Country: US (occurrence: None)
  Receive Date: 20131112
  Receipt Date: 20131112
  Transmission Date: 20140711
  Serious: Yes (Hospitalization)
  Sender: FDA-Public Use
  Company Number: 2013AP009445

PATIENT
  Sex: 0

DRUGS (6)
  1. FERRIPROX [Suspect]
     Indication: HAEMOCHROMATOSIS
     Route: 048
     Dates: start: 20131015, end: 20131018
  2. LISINOPRIL [Concomitant]
  3. PENICILLIN [Concomitant]
  4. IBUPROFEN [Concomitant]
  5. TRAMADOL [Concomitant]
  6. FOLIC ACID [Concomitant]

REACTIONS (3)
  - Rash generalised [None]
  - Pruritus [None]
  - Urticaria [None]
